FAERS Safety Report 8445419-7 (Version None)
Quarter: 2012Q2

REPORT INFORMATION
  Report Type: 
  Country: None (occurrence: None)
  Receive Date: 20120618
  Receipt Date: 20120614
  Transmission Date: 20120825
  Serious: Yes (Other)
  Sender: FDA-Public Use
  Company Number: JP-PFIZER INC-2012137650

PATIENT
  Age: 70 Year
  Sex: Female

DRUGS (3)
  1. CELEBREX [Suspect]
     Indication: BACK PAIN
     Dosage: 200 MG/DAY
     Route: 048
     Dates: start: 20120510, end: 20120524
  2. LOXONIN [Suspect]
     Dosage: UNK
     Route: 062
     Dates: start: 20120510, end: 20120524
  3. REBAMIPIDE [Concomitant]
     Dosage: UNK
     Route: 048
     Dates: start: 20120510, end: 20120524

REACTIONS (1)
  - DRUG ERUPTION [None]
